FAERS Safety Report 7299429-6 (Version None)
Quarter: 2011Q1

REPORT INFORMATION
  Report Type: 
  Country: None (occurrence: None)
  Receive Date: 20110217
  Receipt Date: 20110208
  Transmission Date: 20110831
  Serious: Yes (Other)
  Sender: FDA-Public Use
  Company Number: B0699996A

PATIENT
  Age: 60 Year
  Sex: Male

DRUGS (5)
  1. CARBIDOPA + LEVODOPA [Concomitant]
     Indication: PARKINSONISM
     Dosage: 100MG PER DAY
     Route: 065
     Dates: start: 20100801
  2. ANTIHYPERTENSIVE [Concomitant]
  3. DIURETIC [Concomitant]
  4. RASAGILINE MESYLATE [Concomitant]
     Indication: PARKINSONISM
     Dosage: 1MG PER DAY
     Route: 065
     Dates: start: 20100801
  5. REQUIP [Suspect]
     Indication: PARKINSONISM
     Dosage: 16MG PER DAY
     Route: 048
     Dates: start: 20100801

REACTIONS (4)
  - LOBAR PNEUMONIA [None]
  - PLEURAL EFFUSION [None]
  - DYSPNOEA [None]
  - ASTHMA [None]
